FAERS Safety Report 5273627-5 (Version None)
Quarter: 2007Q1

REPORT INFORMATION
  Report Type: 
  Country: None (occurrence: None)
  Receive Date: 20070321
  Receipt Date: 20070321
  Transmission Date: 20070707
  Serious: Yes (Other)
  Sender: FDA-Public Use
  Company Number: None

PATIENT
  Sex: Male

DRUGS (12)
  1. REVLIMID [Suspect]
     Indication: MULTIPLE MYELOMA
     Dosage: 15MG DAILY PO
     Route: 048
  2. NOVOLIN 50/50 [Concomitant]
  3. ACYCLOVIR [Concomitant]
  4. REGLAN [Concomitant]
  5. VFEND [Concomitant]
  6. PENICILLIN [Concomitant]
  7. HYDROCORTISONE OINTMENT [Concomitant]
  8. NEULASTA [Concomitant]
  9. TACROLIMUS [Concomitant]
  10. GLYCOLAX [Concomitant]
  11. FENTANYL [Concomitant]
  12. SEPTRA DS [Concomitant]

REACTIONS (1)
  - NEUTROPENIA [None]
